FAERS Safety Report 6240219-0 (Version None)
Quarter: 2009Q2

REPORT INFORMATION
  Report Type: 
  Country: None (occurrence: None)
  Receive Date: 20090623
  Receipt Date: 20080925
  Transmission Date: 20091009
  Serious: No
  Sender: FDA-Public Use
  Company Number: US-ASTRAZENECA-2008UW06378

PATIENT
  Age: 25314 Day
  Sex: Female
  Weight: 40.8 kg

DRUGS (12)
  1. PULMICORT RESPULES [Suspect]
     Indication: CHRONIC OBSTRUCTIVE PULMONARY DISEASE
     Dosage: 0.5MG/2ML BID
     Route: 055
     Dates: start: 20080101
  2. ATENOLOL [Concomitant]
  3. DIGOXIN [Concomitant]
  4. COUMADIN [Concomitant]
  5. FUROSEMIDE [Concomitant]
  6. XOPENEX [Concomitant]
  7. POTASSIUM CHLORIDE [Concomitant]
  8. WATER PILL [Concomitant]
  9. SPIRIVA [Concomitant]
  10. BROVANA [Concomitant]
  11. IPRATROPIUM BROMIDE [Concomitant]
  12. ATROVENT [Concomitant]

REACTIONS (9)
  - CHEST DISCOMFORT [None]
  - CONDITION AGGRAVATED [None]
  - COUGH [None]
  - DRUG INEFFECTIVE [None]
  - DYSPNOEA [None]
  - EYE IRRITATION [None]
  - PULMONARY CONGESTION [None]
  - RESPIRATORY TRACT INFECTION [None]
  - WEIGHT DECREASED [None]
